FAERS Safety Report 9380113 (Version 1)
Quarter: 2013Q3

REPORT INFORMATION
  Report Type: Spontaneous
  Country: CN (occurrence: CN)
  Receive Date: 20130702
  Receipt Date: 20130702
  Transmission Date: 20140515
  Serious: Yes (Other)
  Sender: FDA-Public Use
  Company Number: CN-ABBOTT-13X-035-1111934-00

PATIENT
  Age: 42 Year
  Sex: Female

DRUGS (4)
  1. KLACID [Suspect]
     Indication: DUODENAL ULCER
     Route: 048
     Dates: start: 20120227, end: 20120304
  2. AMOXICILLIN [Suspect]
     Indication: PRODUCT USED FOR UNKNOWN INDICATION
  3. SOMAC [Suspect]
     Indication: PRODUCT USED FOR UNKNOWN INDICATION
  4. MUCOSTA [Suspect]
     Indication: PRODUCT USED FOR UNKNOWN INDICATION

REACTIONS (2)
  - Deafness [Recovering/Resolving]
  - Tinnitus [Recovering/Resolving]
